FAERS Safety Report 20239093 (Version 2)
Quarter: 2023Q2

REPORT INFORMATION
  Report Type: Spontaneous
  Country: US (occurrence: US)
  Receive Date: 20211228
  Receipt Date: 20230525
  Transmission Date: 20230722
  Serious: Yes (Other)
  Sender: FDA-Public Use
  Company Number: US-PFIZER INC-202101796467

PATIENT
  Age: 84 Year
  Sex: Male

DRUGS (1)
  1. VYNDAMAX [Suspect]
     Active Substance: TAFAMIDIS
     Dosage: 61 MG

REACTIONS (23)
  - Cellulitis [Unknown]
  - Polymyalgia rheumatica [Unknown]
  - Polyarthritis [Unknown]
  - Neuropathic arthropathy [Unknown]
  - Atrial fibrillation [Unknown]
  - Chronic kidney disease [Unknown]
  - Cellulitis [Unknown]
  - Obesity [Unknown]
  - Diabetic neuropathy [Unknown]
  - Arthralgia [Unknown]
  - Obstructive sleep apnoea syndrome [Unknown]
  - Positive airway pressure therapy [Unknown]
  - Coronary artery disease [Unknown]
  - Wound [Unknown]
  - Bone disorder [Unknown]
  - Chronic left ventricular failure [Unknown]
  - Essential hypertension [Unknown]
  - Dyslipidaemia [Unknown]
  - Amyloidosis senile [Unknown]
  - Insomnia [Unknown]
  - Peripheral venous disease [Unknown]
  - Stasis dermatitis [Unknown]
  - Fall [Unknown]
